FAERS Safety Report 22168162 (Version 1)
Quarter: 2023Q2

REPORT INFORMATION
  Report Type: Spontaneous
  Country: FR (occurrence: FR)
  Receive Date: 20230403
  Receipt Date: 20230403
  Transmission Date: 20230722
  Serious: Yes (Other)
  Sender: FDA-Public Use
  Company Number: FR-MLMSERVICE-20230317-4170203-1

PATIENT
  Age: 75 Year
  Sex: Male

DRUGS (4)
  1. GEMCITABINE HYDROCHLORIDE [Suspect]
     Active Substance: GEMCITABINE HYDROCHLORIDE
     Indication: Pancreatic carcinoma metastatic
     Dosage: UNK UNK, UNKNOWN
     Route: 065
     Dates: start: 202008, end: 2021
  2. GEMCITABINE HYDROCHLORIDE [Suspect]
     Active Substance: GEMCITABINE HYDROCHLORIDE
     Indication: Disease recurrence
  3. VERAPAMIL [Concomitant]
     Active Substance: VERAPAMIL HYDROCHLORIDE
     Indication: Hypertension
     Dosage: UNK, UNKNOWN
     Route: 065
  4. TINZAPARIN [Concomitant]
     Active Substance: TINZAPARIN
     Indication: Deep vein thrombosis
     Dosage: UNK, UNKNOWN
     Route: 065
     Dates: start: 2019

REACTIONS (4)
  - Peripheral vascular disorder [Recovering/Resolving]
  - Therapeutic product effect prolonged [Recovering/Resolving]
  - Raynaud^s phenomenon [Recovering/Resolving]
  - Skin ulcer [Recovering/Resolving]
